FAERS Safety Report 8428382-4 (Version None)
Quarter: 2012Q2

REPORT INFORMATION
  Report Type: 
  Country: None (occurrence: None)
  Receive Date: 20120612
  Receipt Date: 20120604
  Transmission Date: 20120825
  Serious: Yes (Other)
  Sender: FDA-Public Use
  Company Number: US-BIOGENIDEC-2012BI017570

PATIENT
  Age: 57 Year
  Sex: Female

DRUGS (12)
  1. MULTI-VITAMIN [Concomitant]
     Route: 048
  2. VITAMIN D HIGH POTENCY [Concomitant]
     Route: 048
     Dates: start: 20120508
  3. FLEXERIL [Concomitant]
     Route: 048
     Dates: start: 20120516
  4. METFORMIN HCL [Concomitant]
     Route: 048
  5. TYSABRI [Suspect]
     Indication: MULTIPLE SCLEROSIS
     Route: 042
     Dates: start: 20110505, end: 20120420
  6. ASPIRIN [Concomitant]
     Route: 048
  7. IRON ACTIVE [Concomitant]
  8. PANTOPRAZOLE [Concomitant]
     Route: 048
  9. LIDODERM [Concomitant]
     Dates: start: 20110303
  10. IBUPROFIN [Concomitant]
  11. INSULIN [Concomitant]
  12. LOSARTAN POTASSIUM AND HYDROCHLOROTHIAZIDE [Concomitant]
     Route: 048

REACTIONS (6)
  - MULTIPLE SCLEROSIS RELAPSE [None]
  - NAUSEA [None]
  - VIRAL INFECTION [None]
  - LARYNGITIS [None]
  - PROGRESSIVE MULTIFOCAL LEUKOENCEPHALOPATHY [None]
  - URINARY TRACT INFECTION [None]
